FAERS Safety Report 14789817 (Version 2)
Quarter: 2018Q2

REPORT INFORMATION
  Report Type: Spontaneous
  Country: US (occurrence: US)
  Receive Date: 20180423
  Receipt Date: 20180427
  Transmission Date: 20180711
  Serious: No
  Sender: FDA-Public Use
  Company Number: US-PFIZER INC-2017394687

PATIENT
  Age: 38 Year
  Sex: Male
  Weight: 72.56 kg

DRUGS (16)
  1. NORDITROPIN [Concomitant]
     Active Substance: SOMATROPIN
     Dosage: 0.3 MG, DAILY
     Route: 058
  2. NUTROPIN [Concomitant]
     Active Substance: SOMATROPIN
     Dosage: 0.3 MG, UNK
     Route: 058
  3. GENOTROPIN [Suspect]
     Active Substance: SOMATROPIN
     Indication: GROWTH HORMONE DEFICIENCY
     Dosage: 0.2 MG, DAILY
     Route: 058
     Dates: start: 2017
  4. DESYREL [Concomitant]
     Active Substance: TRAZODONE HYDROCHLORIDE
     Dosage: 50 MG, 1X/DAY (DAILY BEDTIME)
     Route: 048
  5. PREVACID [Concomitant]
     Active Substance: LANSOPRAZOLE
     Dosage: 15 MG, DAILY
     Route: 048
  6. NUTROPIN AQ NUSPIN [Concomitant]
     Active Substance: SOMATROPIN
     Dosage: 0.2 MG, DAILY, (INJECT 0.2 MG SUBCUTANEOUSLY EVERYDAY)
     Route: 058
  7. DEPO-TESTOSTERONE [Concomitant]
     Active Substance: TESTOSTERONE CYPIONATE
     Dosage: 140 MG, CYCLIC, (EVERY FOURTEEN DAYS) (Q2WKS)
     Route: 030
  8. FISH OIL [Concomitant]
     Active Substance: FISH OIL
     Dosage: UNK UNK, DAILY
     Route: 048
  9. NUTROPIN AQ [Concomitant]
     Active Substance: SOMATROPIN
     Dosage: 0.2 MG, DAILY
     Route: 058
  10. GENOTROPIN [Suspect]
     Active Substance: SOMATROPIN
     Dosage: UNK (EVERY OTHER DAY)
     Dates: start: 2018
  11. GENOTROPIN [Suspect]
     Active Substance: SOMATROPIN
     Indication: HEAD INJURY
     Dosage: 0.2 MG, 1X/DAY
     Dates: start: 2017
  12. SKELAXIN [Concomitant]
     Active Substance: METAXALONE
     Dosage: 800 MG, 3X/DAY
     Route: 048
  13. SYNTHROID [Concomitant]
     Active Substance: LEVOTHYROXINE SODIUM
     Dosage: 100 UG, DAILY
     Route: 048
  14. ULTRAM [Concomitant]
     Active Substance: TRAMADOL HYDROCHLORIDE
     Dosage: 100 MG, 3X/DAY
     Route: 048
  15. VITAMIN D2 [Concomitant]
     Active Substance: ERGOCALCIFEROL
     Dosage: UNK UNK, DAILY
     Route: 048
  16. BUSPAR [Concomitant]
     Active Substance: BUSPIRONE HYDROCHLORIDE
     Dosage: 15 MG, 2X/DAY, (TAKE 15 MG BY MOUTH TWICE A DAY)
     Route: 048

REACTIONS (3)
  - Intentional product misuse [Unknown]
  - Injection site discolouration [Unknown]
  - Inappropriate schedule of drug administration [Unknown]

NARRATIVE: CASE EVENT DATE: 2018
